FAERS Safety Report 8919750 (Version 2)
Quarter: 2012Q4

REPORT INFORMATION
  Report Type: 
  Country: JP (occurrence: JP)
  Receive Date: 20121121
  Receipt Date: 20121228
  Transmission Date: 20130627
  Serious: Yes (Other)
  Sender: FDA-Public Use
  Company Number: JP-MPIJNJ-2011-02824

PATIENT

DRUGS (3)
  1. VELCADE [Suspect]
     Indication: PLASMA CELL MYELOMA
     Dosage: UNK
     Dates: start: 200811
  2. VELCADE [Suspect]
     Dosage: 1.40 mg/m2, UNK
     Route: 042
  3. VORICONAZOLE [Suspect]
     Indication: ANTIFUNGAL PROPHYLAXIS
     Dosage: 400 mg, UNK
     Route: 048

REACTIONS (7)
  - Ileus paralytic [Recovering/Resolving]
  - Transfusion associated graft versus host disease [Unknown]
  - Drug interaction [Unknown]
  - Neuropathy peripheral [Recovering/Resolving]
  - Anaemia [Unknown]
  - Oedema peripheral [Unknown]
  - Thrombocytopenia [Unknown]
